FAERS Safety Report 8107751-6 (Version None)
Quarter: 2012Q1

REPORT INFORMATION
  Report Type: 
  Country: None (occurrence: None)
  Receive Date: 20120202
  Receipt Date: 20120120
  Transmission Date: 20120608
  Serious: Yes (Life-Threatening)
  Sender: FDA-Public Use
  Company Number: DK-JNJFOC-20111102182

PATIENT
  Sex: Male
  Weight: 86 kg

DRUGS (3)
  1. PREDNISOLONE [Concomitant]
  2. ASPIRIN [Concomitant]
  3. REMICADE [Suspect]
     Indication: CROHN'S DISEASE
     Dosage: RECEIVED APPROXIMATELY 40 NFUSIONS
     Route: 042
     Dates: start: 20080523, end: 20110623

REACTIONS (2)
  - BACK PAIN [None]
  - HODGKIN'S DISEASE [None]
